FAERS Safety Report 11133361 (Version 1)
Quarter: 2015Q2

REPORT INFORMATION
  Report Type: Spontaneous
  Country: US (occurrence: US)
  Receive Date: 20150522
  Receipt Date: 20150522
  Transmission Date: 20150821
  Serious: No
  Sender: FDA-Public Use
  Company Number: US-MALLINCKRODT-QSC-2014-0452

PATIENT
  Age: 19 Year
  Sex: Female

DRUGS (1)
  1. H.P. ACTHAR [Suspect]
     Active Substance: CORTICOTROPIN
     Indication: FOCAL SEGMENTAL GLOMERULOSCLEROSIS
     Dosage: 80 UNITS, EVERY FOUR DAYS
     Route: 058
     Dates: start: 20130921

REACTIONS (3)
  - Injection site bruising [Unknown]
  - Blood glucose increased [Unknown]
  - Rash macular [Unknown]

NARRATIVE: CASE EVENT DATE: 20130921
